FAERS Safety Report 20649581 (Version 1)
Quarter: 2022Q1

REPORT INFORMATION
  Report Type: Spontaneous
  Country: US (occurrence: None)
  Receive Date: 20220329
  Receipt Date: 20220329
  Transmission Date: 20220423
  Serious: No
  Sender: FDA-Public Use
  Company Number: None

PATIENT
  Age: 89 Year
  Sex: Male
  Weight: 84.91 kg

DRUGS (11)
  1. ABIRATERONE [Suspect]
     Active Substance: ABIRATERONE
     Indication: Prostate cancer
     Dosage: FREQUENCY : DAILY;?
     Route: 048
     Dates: start: 20200630
  2. ASPIRIN [Suspect]
     Active Substance: ASPIRIN
  3. CALCIUM [Suspect]
     Active Substance: CALCIUM
  4. HYDROCHLOROTHIAZIDE [Suspect]
     Active Substance: HYDROCHLOROTHIAZIDE
  5. ISOSORBIDE [Suspect]
     Active Substance: ISOSORBIDE
  6. LIPITOR [Suspect]
     Active Substance: ATORVASTATIN CALCIUM
  7. LOSARTAN [Suspect]
     Active Substance: LOSARTAN
  8. LUPRON [Suspect]
     Active Substance: LEUPROLIDE ACETATE
  9. LYNPARZA [Suspect]
     Active Substance: OLAPARIB
  10. PREDNISONE [Suspect]
     Active Substance: PREDNISONE
  11. XGEVA [Suspect]
     Active Substance: DENOSUMAB

REACTIONS (2)
  - Disease progression [None]
  - Prostatic specific antigen increased [None]
